FAERS Safety Report 13550634 (Version 1)
Quarter: 2017Q2

REPORT INFORMATION
  Report Type: Spontaneous
  Country: US (occurrence: US)
  Receive Date: 20170516
  Receipt Date: 20170516
  Transmission Date: 20170830
  Serious: Yes (Hospitalization)
  Sender: FDA-Public Use
  Company Number: None

PATIENT
  Age: 74 Year
  Sex: Male
  Weight: 124 kg

DRUGS (10)
  1. REQUIP [Concomitant]
     Active Substance: ROPINIROLE HYDROCHLORIDE
  2. FE [Concomitant]
     Active Substance: IRON
  3. COZAAR [Concomitant]
     Active Substance: LOSARTAN POTASSIUM
  4. FLONASE [Concomitant]
     Active Substance: FLUTICASONE PROPIONATE
  5. VITD [Concomitant]
  6. DOCUSATE SODIUM. [Concomitant]
     Active Substance: DOCUSATE SODIUM
  7. MS CONTIN [Concomitant]
     Active Substance: MORPHINE SULFATE
  8. ROXICODONE [Concomitant]
     Active Substance: OXYCODONE HYDROCHLORIDE
  9. WARFARIN [Suspect]
     Active Substance: WARFARIN
     Indication: ATRIAL FIBRILLATION
     Dosage: CHRONIC?2MG MWFSUN PO
     Route: 048
  10. MINOMYCINE [Concomitant]

REACTIONS (4)
  - Anticoagulation drug level above therapeutic [None]
  - Haemorrhage [None]
  - Anaemia [None]
  - Gastric varices [None]

NARRATIVE: CASE EVENT DATE: 20170111
